FAERS Safety Report 9503238 (Version 1)
Quarter: 2013Q3

REPORT INFORMATION
  Report Type: Report from Study
  Country: LB (occurrence: LB)
  Receive Date: 20130906
  Receipt Date: 20130906
  Transmission Date: 20140515
  Serious: Yes (Other)
  Sender: FDA-Public Use
  Company Number: LB-SANOFI-AVENTIS-2013SA088580

PATIENT
  Age: 62 Year
  Sex: Male

DRUGS (7)
  1. LANTUS SOLOSTAR [Suspect]
     Indication: DIABETES MELLITUS
     Dosage: STARTED 7 MONTHS AGO?DOSE: 16 UNITS DAILY WITH TITRATION DOSE:16 UNIT(S)
     Route: 058
  2. SOLOSTAR [Concomitant]
     Indication: DEVICE THERAPY
  3. DIAMICRON [Concomitant]
     Indication: DIABETES MELLITUS
     Route: 048
  4. GALVUSMET [Concomitant]
     Indication: DIABETES MELLITUS
     Route: 048
  5. FLUDEX [Concomitant]
     Route: 048
  6. TRITACE [Concomitant]
     Route: 048
  7. ASPICOT [Concomitant]
     Route: 048

REACTIONS (2)
  - Haematuria [Not Recovered/Not Resolved]
  - Weight decreased [Not Recovered/Not Resolved]
